FAERS Safety Report 15429252 (Version 2)
Quarter: 2018Q4

REPORT INFORMATION
  Report Type: Spontaneous
  Country: US (occurrence: US)
  Receive Date: 20180926
  Receipt Date: 20181001
  Transmission Date: 20190204
  Serious: No
  Sender: FDA-Public Use
  Company Number: US-BAYER-2018-178179

PATIENT
  Sex: Male

DRUGS (14)
  1. CLARITIN [Suspect]
     Active Substance: LORATADINE
     Indication: ALLERGIC RESPIRATORY SYMPTOM
     Dosage: 1 DF, QD
     Route: 048
  2. VITAMIN D [Concomitant]
     Active Substance: CHOLECALCIFEROL
  3. POTASSIUM CHLORIDE. [Concomitant]
     Active Substance: POTASSIUM CHLORIDE
  4. FISH OIL [Concomitant]
     Active Substance: FISH OIL
  5. ATORVASTATIN [Concomitant]
     Active Substance: ATORVASTATIN
  6. CLARITIN [Suspect]
     Active Substance: LORATADINE
     Indication: NASOPHARYNGITIS
  7. BAYER LOW DOSE [Concomitant]
     Active Substance: ASPIRIN
  8. FUROSEMID [FUROSEMIDE] [Concomitant]
  9. ALFUZOSIN [Concomitant]
     Active Substance: ALFUZOSIN
  10. ALEVE [Suspect]
     Active Substance: NAPROXEN SODIUM
  11. CELEBREX [Concomitant]
     Active Substance: CELECOXIB
  12. CARVEDILOL. [Concomitant]
     Active Substance: CARVEDILOL
  13. LYRICA [Concomitant]
     Active Substance: PREGABALIN
  14. MULTIVITAMIN [Concomitant]
     Active Substance: VITAMINS

REACTIONS (2)
  - Drug hypersensitivity [Unknown]
  - Incorrect dosage administered [Unknown]

NARRATIVE: CASE EVENT DATE: 20180921
